FAERS Safety Report 9508155 (Version 1)
Quarter: 2013Q3

REPORT INFORMATION
  Report Type: Spontaneous
  Country: US (occurrence: US)
  Receive Date: 20130909
  Receipt Date: 20130909
  Transmission Date: 20140515
  Serious: No
  Sender: FDA-Public Use
  Company Number: US-PFIZER INC-2013256187

PATIENT
  Age: 22 Year
  Sex: Male

DRUGS (1)
  1. ADVIL [Suspect]
     Indication: HEADACHE
     Dosage: 200 MG, DAILY
     Dates: start: 20130903

REACTIONS (3)
  - Expired drug administered [Unknown]
  - Cough [Unknown]
  - Haemoptysis [Unknown]
